FAERS Safety Report 17244403 (Version 7)
Quarter: 2021Q3

REPORT INFORMATION
  Report Type: Spontaneous
  Country: US (occurrence: US)
  Receive Date: 20200107
  Receipt Date: 20210802
  Transmission Date: 20211014
  Serious: Yes (Other)
  Sender: FDA-Public Use
  Company Number: US-GILEAD-2019-0444946

PATIENT
  Age: 54 Year
  Sex: Female
  Weight: 104.31 kg

DRUGS (30)
  1. VANCOMYCIN [Concomitant]
     Active Substance: VANCOMYCIN
  2. ZANTAC [Concomitant]
     Active Substance: RANITIDINE HYDROCHLORIDE
  3. HEPARIN [Concomitant]
     Active Substance: HEPARIN SODIUM
  4. PENICILLIN B [Concomitant]
     Active Substance: PHENETICILLIN
  5. TETRACYCLINE [Concomitant]
     Active Substance: TETRACYCLINE
  6. HYDROXYZINE [Concomitant]
     Active Substance: HYDROXYZINE HYDROCHLORIDE
  7. AMOXICILLIN. [Concomitant]
     Active Substance: AMOXICILLIN
  8. BACTRIM [Concomitant]
     Active Substance: SULFAMETHOXAZOLE\TRIMETHOPRIM
  9. OMEPRAZOLE. [Concomitant]
     Active Substance: OMEPRAZOLE
  10. FAMCICLOVIR. [Concomitant]
     Active Substance: FAMCICLOVIR
  11. FLUOCINONIDE. [Concomitant]
     Active Substance: FLUOCINONIDE
  12. LIDOCAINE. [Concomitant]
     Active Substance: LIDOCAINE
  13. BENZONATATE. [Concomitant]
     Active Substance: BENZONATATE
  14. ATRIPLA [Suspect]
     Active Substance: EFAVIRENZ\EMTRICITABINE\TENOFOVIR DISOPROXIL FUMARATE
     Dosage: UNK
     Route: 048
     Dates: start: 2007, end: 2018
  15. PANTOPRAZOLE [Concomitant]
     Active Substance: PANTOPRAZOLE
  16. ALBUTEROL HFA [Concomitant]
     Active Substance: ALBUTEROL SULFATE
  17. PROZAC [Concomitant]
     Active Substance: FLUOXETINE HYDROCHLORIDE
  18. ESTROGEN [Concomitant]
     Active Substance: ESTROGENS
  19. PRAVASTATIN. [Concomitant]
     Active Substance: PRAVASTATIN
  20. ASPIRIN (E.C.) [Concomitant]
     Active Substance: ASPIRIN
  21. CORTISONE [Concomitant]
     Active Substance: CORTISONE
  22. FLUCONAZOLE. [Concomitant]
     Active Substance: FLUCONAZOLE
  23. NORTRIPTYLINE [Concomitant]
     Active Substance: NORTRIPTYLINE
  24. ATRIPLA [Suspect]
     Active Substance: EFAVIRENZ\EMTRICITABINE\TENOFOVIR DISOPROXIL FUMARATE
     Indication: HIV INFECTION
     Dosage: UNK
     Route: 048
     Dates: start: 200506, end: 2018
  25. GENVOYA [Concomitant]
     Active Substance: COBICISTAT\ELVITEGRAVIR\EMTRICITABINE\TENOFOVIR ALAFENAMIDE FUMARATE
     Indication: PRODUCT USED FOR UNKNOWN INDICATION
     Route: 048
  26. ACYCLOVIR [ACICLOVIR] [Concomitant]
     Active Substance: ACYCLOVIR
  27. AMPICILLIN [Concomitant]
     Active Substance: AMPICILLIN
  28. LANSOPRAZOLE. [Concomitant]
     Active Substance: LANSOPRAZOLE
  29. CALCIUM [Concomitant]
     Active Substance: CALCIUM
  30. VITAMIN D PLUS [Concomitant]

REACTIONS (17)
  - Ankle fracture [Unknown]
  - Anhedonia [Not Recovered/Not Resolved]
  - Economic problem [Not Recovered/Not Resolved]
  - Intervertebral disc degeneration [Not Recovered/Not Resolved]
  - Anxiety [Not Recovered/Not Resolved]
  - Osteoporosis [Not Recovered/Not Resolved]
  - Bone density decreased [Unknown]
  - Post-traumatic stress disorder [Recovered/Resolved]
  - Nightmare [Recovered/Resolved]
  - Depression [Unknown]
  - Vitamin D deficiency [Not Recovered/Not Resolved]
  - Spinal stenosis [Not Recovered/Not Resolved]
  - Tooth loss [Not Recovered/Not Resolved]
  - Emotional distress [Not Recovered/Not Resolved]
  - Panic attack [Not Recovered/Not Resolved]
  - Pain [Not Recovered/Not Resolved]
  - Osteopenia [Recovered/Resolved]

NARRATIVE: CASE EVENT DATE: 2010
